FAERS Safety Report 7040333-6 (Version None)
Quarter: 2010Q4

REPORT INFORMATION
  Report Type: 
  Country: None (occurrence: None)
  Receive Date: 20101012
  Receipt Date: 20100917
  Transmission Date: 20110411
  Serious: Yes (Death)
  Sender: FDA-Public Use
  Company Number: TR-GENZYME-RENA-1000806

PATIENT
  Sex: Female

DRUGS (4)
  1. RENAGEL [Suspect]
     Indication: HYPERPHOSPHATAEMIA
     Dosage: 2.4 G, TID
     Route: 048
     Dates: start: 20070215, end: 20080518
  2. NORVASC [Concomitant]
     Indication: PRODUCT USED FOR UNKNOWN INDICATION
     Route: 065
  3. ASPIRIN [Concomitant]
     Indication: PRODUCT USED FOR UNKNOWN INDICATION
     Route: 065
  4. MONODUR [Concomitant]
     Indication: PRODUCT USED FOR UNKNOWN INDICATION
     Route: 065

REACTIONS (1)
  - MYOCARDIAL INFARCTION [None]
